FAERS Safety Report 9344050 (Version 1)
Quarter: 2013Q2

REPORT INFORMATION
  Report Type: Spontaneous
  Country: GB (occurrence: GB)
  Receive Date: 20130612
  Receipt Date: 20130612
  Transmission Date: 20140414
  Serious: Yes (Other)
  Sender: FDA-Public Use
  Company Number: GB-ASTRAZENECA-2013SE40418

PATIENT
  Age: 79 Year
  Sex: Female
  Weight: 63.5 kg

DRUGS (11)
  1. TICAGRELOR [Suspect]
     Indication: ACUTE MYOCARDIAL INFARCTION
     Route: 048
     Dates: start: 20130517, end: 20130517
  2. TICAGRELOR [Suspect]
     Indication: ACUTE MYOCARDIAL INFARCTION
     Route: 048
     Dates: start: 20130518, end: 20130518
  3. AMLODIPINE [Concomitant]
  4. ASPIRIN [Concomitant]
  5. ATENOLOL [Concomitant]
  6. ATORVASTATIN [Concomitant]
  7. BISOPROLOL [Concomitant]
  8. CLOPIDOGREL [Concomitant]
  9. FRAGMIN [Concomitant]
  10. OMEPRAZOLE [Concomitant]
  11. RAMIPRIL [Concomitant]

REACTIONS (5)
  - Agitation [Unknown]
  - Psychotic disorder [Recovered/Resolved]
  - Aggression [Unknown]
  - Confusional state [Unknown]
  - Disorientation [Unknown]
